FAERS Safety Report 25524207 (Version 1)
Quarter: 2025Q3

REPORT INFORMATION
  Report Type: Spontaneous
  Country: US (occurrence: None)
  Receive Date: 20250703
  Receipt Date: 20250703
  Transmission Date: 20251020
  Serious: Yes (Other)
  Sender: FDA-CTU
  Company Number: None

PATIENT
  Age: 45 Year
  Sex: Female
  Weight: 69.75 kg

DRUGS (2)
  1. TIRZEPATIDE [Suspect]
     Active Substance: TIRZEPATIDE
     Indication: Weight decreased
     Dosage: OTHER QUANTITY : 2 ML;?OTHER FREQUENCY : WEEKLY;?
     Route: 055
     Dates: start: 20250617, end: 20250624
  2. ZINC [Concomitant]
     Active Substance: ZINC

REACTIONS (2)
  - Gait inability [None]
  - Hypersensitivity [None]

NARRATIVE: CASE EVENT DATE: 20250624
